FAERS Safety Report 21833662 (Version 1)
Quarter: 2023Q1

REPORT INFORMATION
  Report Type: Spontaneous
  Country: PT (occurrence: PT)
  Receive Date: 20230107
  Receipt Date: 20230107
  Transmission Date: 20230418
  Serious: Yes (Other)
  Sender: FDA-Public Use
  Company Number: PT-KERNPHARMA-202202283

PATIENT
  Age: 83 Year
  Sex: Female

DRUGS (1)
  1. AMOXICILLIN\CLAVULANIC ACID [Suspect]
     Active Substance: AMOXICILLIN\CLAVULANIC ACID
     Indication: Endocarditis
     Dosage: UNK
     Route: 065

REACTIONS (2)
  - Septic embolus [Unknown]
  - Haemorrhagic stroke [Unknown]
